FAERS Safety Report 6822837-1 (Version None)
Quarter: 2010Q3

REPORT INFORMATION
  Report Type: 
  Country: None (occurrence: None)
  Receive Date: 20100707
  Receipt Date: 20100707
  Transmission Date: 20110219
  Serious: Yes (Life-Threatening, Other)
  Sender: FDA-Public Use
  Company Number: None

PATIENT
  Age: 57 Year
  Sex: Male
  Weight: 90.7194 kg

DRUGS (1)
  1. CETIRIZINE HCL [Suspect]
     Indication: MULTIPLE ALLERGIES
     Dosage: 10MG ONCE DAILY PO
     Route: 048
     Dates: start: 20100430, end: 20100630

REACTIONS (6)
  - CHEST PAIN [None]
  - DYSPNOEA [None]
  - ECONOMIC PROBLEM [None]
  - INSOMNIA [None]
  - LUNG DISORDER [None]
  - PAIN [None]
